FAERS Safety Report 18912910 (Version 1)
Quarter: 2021Q1

REPORT INFORMATION
  Report Type: Other
  Country: US (occurrence: US)
  Receive Date: 20210219
  Receipt Date: 20210219
  Transmission Date: 20210420
  Serious: Yes (Other)
  Sender: FDA-Public Use
  Company Number: US-ROCHE-2767895

PATIENT

DRUGS (6)
  1. CYCLOSPORINE. [Concomitant]
     Active Substance: CYCLOSPORINE
  2. TACROLIMUS. [Concomitant]
     Active Substance: TACROLIMUS
  3. DACLIZUMAB [Concomitant]
     Active Substance: DACLIZUMAB
  4. PREDNISONE. [Concomitant]
     Active Substance: PREDNISONE
  5. MYCOPHENOLATE MOFETIL. [Suspect]
     Active Substance: MYCOPHENOLATE MOFETIL
     Indication: PROPHYLAXIS AGAINST TRANSPLANT REJECTION
     Dosage: TYPICAL STARTING DOSE
     Route: 065
  6. OKT3 [Concomitant]
     Active Substance: MUROMONAB-CD3

REACTIONS (14)
  - Thrombocytopenia [Unknown]
  - Dermatitis [Unknown]
  - Gastrointestinal disorder [Unknown]
  - Oedema peripheral [Unknown]
  - Retrosternal fluid evacuation [Unknown]
  - Wound infection [Unknown]
  - Low density lipoprotein increased [Unknown]
  - Pericardial effusion [Unknown]
  - Impaired healing [Unknown]
  - Leukopenia [Unknown]
  - Anaemia [Unknown]
  - Thoracic cavity drainage [Unknown]
  - Blood triglycerides increased [Unknown]
  - Pleural effusion [Unknown]
